FAERS Safety Report 9311665 (Version 1)
Quarter: 2013Q1

REPORT INFORMATION
  Report Type: Spontaneous
  Country: BR (occurrence: None)
  Receive Date: 20130207
  Receipt Date: 20130207
  Transmission Date: 20140127
  Serious: Yes (Other)
  Sender: FDA-Public Use
  Company Number: 7172852

PATIENT
  Age: 29 Year
  Sex: Female

DRUGS (3)
  1. REBIF (INTERFERON BETA-1A) [Suspect]
     Indication: PRODUCT USED FOR UNKNOWN INDICATION
     Dates: start: 20110810
  2. IBUPROFEN (IBUPROFEN) [Concomitant]
  3. MANTIDAN (AMANTADINE HYDROCHLORIDE) [Concomitant]

REACTIONS (6)
  - Rheumatoid arthritis [None]
  - Somnolence [None]
  - Back pain [None]
  - Pyrexia [None]
  - Headache [None]
  - Injection site erythema [None]
